FAERS Safety Report 14385344 (Version 3)
Quarter: 2018Q3

REPORT INFORMATION
  Report Type: Spontaneous
  Country: SK (occurrence: SK)
  Receive Date: 20180115
  Receipt Date: 20180807
  Transmission Date: 20181010
  Serious: Yes (Life-Threatening)
  Sender: FDA-Public Use
  Company Number: SK-CELGENEUS-SVK-20180100313

PATIENT
  Age: 62 Year
  Sex: Male

DRUGS (3)
  1. AZACITIDINE. [Suspect]
     Active Substance: AZACITIDINE
     Dosage: DOSE REDUCED BY ANOTHER HALF
     Route: 041
     Dates: start: 201608
  2. AZACITIDINE. [Suspect]
     Active Substance: AZACITIDINE
     Indication: MYELODYSPLASTIC SYNDROME
     Route: 041
     Dates: start: 201603
  3. AZACITIDINE. [Suspect]
     Active Substance: AZACITIDINE
     Dosage: DOSE REDUCED BY HALF
     Route: 041
     Dates: start: 201604

REACTIONS (8)
  - Agranulocytosis [Unknown]
  - Febrile infection [Unknown]
  - Thrombocytopenia [Unknown]
  - Neutropenia [Unknown]
  - Leukopenia [Unknown]
  - Tracheobronchitis [Unknown]
  - Sepsis [Unknown]
  - Pseudomonas infection [Unknown]
